FAERS Safety Report 5018122-3 (Version None)
Quarter: 2006Q2

REPORT INFORMATION
  Report Type: 
  Country: None (occurrence: None)
  Receive Date: 20060530
  Receipt Date: 20060515
  Transmission Date: 20061013
  Serious: Yes (Hospitalization, Other)
  Sender: FDA-Public Use
  Company Number: 2006041685

PATIENT
  Age: 63 Year
  Sex: Female
  Weight: 113.8529 kg

DRUGS (2)
  1. BEXTRA [Suspect]
     Indication: INFLAMMATION
     Dosage: 40 MG (20 MG, 2 IN 1 D),
     Dates: start: 20030101, end: 20040708
  2. BEXTRA [Suspect]
     Indication: PAIN
     Dosage: 40 MG (20 MG, 2 IN 1 D),
     Dates: start: 20030101, end: 20040708

REACTIONS (3)
  - ATRIAL FIBRILLATION [None]
  - CARDIAC FAILURE CONGESTIVE [None]
  - CEREBROVASCULAR ACCIDENT [None]
